FAERS Safety Report 19667321 (Version 1)
Quarter: 2021Q3

REPORT INFORMATION
  Report Type: Spontaneous
  Country: CA (occurrence: CA)
  Receive Date: 20210806
  Receipt Date: 20210806
  Transmission Date: 20211014
  Serious: Yes (Disabling)
  Sender: FDA-Public Use
  Company Number: CA-ACCORD-234567

PATIENT
  Age: 73 Year
  Sex: Female
  Weight: 68 kg

DRUGS (3)
  1. HERCEPTIN [Concomitant]
     Active Substance: TRASTUZUMAB
     Dosage: SOLUTION SUBCUTANEOUS
  2. DOCETAXEL. [Suspect]
     Active Substance: DOCETAXEL
     Dosage: DOSE:75.0 MG/M2,1 EVERY 3 WEEKS, SOLUTION INTRAVENOUS,20MG/2ML; 80MG/8ML;?160MG/16ML VIALS
     Route: 042
  3. PERJETA [Concomitant]
     Active Substance: PERTUZUMAB
     Dosage: SOLUTION INTRAVENOUS

REACTIONS (1)
  - Hypoacusis [Unknown]
